FAERS Safety Report 14075429 (Version 3)
Quarter: 2017Q4

REPORT INFORMATION
  Report Type: Spontaneous
  Country: DE (occurrence: DE)
  Receive Date: 20171011
  Receipt Date: 20171113
  Transmission Date: 20180321
  Serious: Yes (Hospitalization)
  Sender: FDA-Public Use
  Company Number: DE-TEVA-813463GER

PATIENT
  Age: 66 Year
  Sex: Female
  Weight: 77 kg

DRUGS (1)
  1. METRONIDAZOL-RATIOPHARM 400 MG TABLETTEN [Suspect]
     Active Substance: METRONIDAZOLE
     Dosage: 800 MILLIGRAM DAILY; USED ONCE 2 TABLETS
     Route: 048
     Dates: start: 20170912, end: 20170913

REACTIONS (14)
  - Paraesthesia [Unknown]
  - Headache [Recovered/Resolved]
  - Dizziness [Recovered/Resolved]
  - Decreased appetite [Recovering/Resolving]
  - Diplopia [Unknown]
  - Vomiting [Recovered/Resolved]
  - Back pain [Unknown]
  - Somnolence [Recovered/Resolved]
  - Vision blurred [Recovering/Resolving]
  - Headache [Recovered/Resolved]
  - Nausea [Not Recovered/Not Resolved]
  - Ear pain [Unknown]
  - Fatigue [Recovered/Resolved]
  - Discomfort [Unknown]

NARRATIVE: CASE EVENT DATE: 2017
